FAERS Safety Report 16682349 (Version 2)
Quarter: 2019Q3

REPORT INFORMATION
  Report Type: Spontaneous
  Country: CN (occurrence: CN)
  Receive Date: 20190808
  Receipt Date: 20190830
  Transmission Date: 20191004
  Serious: Yes (Other)
  Sender: FDA-Public Use
  Company Number: CN-ASTRAZENECA-2019SF12228

PATIENT
  Age: 813 Month
  Sex: Female
  Weight: 40 kg

DRUGS (5)
  1. TELMISARTAN. [Concomitant]
     Active Substance: TELMISARTAN
     Indication: BLOOD PRESSURE ABNORMAL
     Dosage: 1 TABLET A DAY
     Route: 048
  2. SODIUM LEVOTHYROXINE [Concomitant]
     Active Substance: LEVOTHYROXINE SODIUM
     Indication: THYROXINE ABNORMAL
     Dosage: 4 TABLETS
     Route: 048
  3. TAGRISSO [Concomitant]
     Active Substance: OSIMERTINIB
  4. IRESSA [Suspect]
     Active Substance: GEFITINIB
     Indication: NON-SMALL CELL LUNG CANCER
     Dosage: 1 TABLET, EVERY 8-9 PM AFTER DINNER
     Route: 048
     Dates: start: 201803, end: 201901
  5. NIFEDIPINE. [Concomitant]
     Active Substance: NIFEDIPINE

REACTIONS (8)
  - Malignant neoplasm progression [Unknown]
  - Speech disorder [Unknown]
  - Diarrhoea [Unknown]
  - Intellectual disability [Unknown]
  - Drug resistance [Unknown]
  - Decreased appetite [Unknown]
  - Motor dysfunction [Unknown]
  - Drug ineffective [Unknown]

NARRATIVE: CASE EVENT DATE: 201901
